FAERS Safety Report 5155920-X (Version None)
Quarter: 2006Q4

REPORT INFORMATION
  Report Type: 
  Country: None (occurrence: None)
  Receive Date: 20061122
  Receipt Date: 20061114
  Transmission Date: 20070319
  Serious: Yes (Other)
  Sender: FDA-Public Use
  Company Number: GB-BRISTOL-MYERS SQUIBB COMPANY-13579255

PATIENT
  Age: 40 Year
  Sex: Male

DRUGS (5)
  1. EFAVIRENZ [Suspect]
     Indication: HIV INFECTION
     Route: 048
     Dates: start: 20050907, end: 20061006
  2. COMBIVIR [Suspect]
     Indication: HIV INFECTION
     Route: 048
     Dates: start: 20050906, end: 20061006
  3. COTRIM D.S. [Concomitant]
     Indication: PNEUMOCYSTIS JIROVECI PNEUMONIA
     Route: 048
     Dates: start: 20050811
  4. COTRIM D.S. [Concomitant]
     Indication: PROPHYLAXIS
     Route: 048
     Dates: start: 20050811
  5. FLUCONAZOLE [Concomitant]
     Indication: MENINGITIS CRYPTOCOCCAL
     Route: 048
     Dates: start: 20050809

REACTIONS (3)
  - DIABETIC KETOACIDOSIS [None]
  - HYPERTRIGLYCERIDAEMIA [None]
  - PANCREATITIS [None]
